FAERS Safety Report 7913114-6 (Version None)
Quarter: 2011Q4

REPORT INFORMATION
  Report Type: 
  Country: None (occurrence: None)
  Receive Date: 20111114
  Receipt Date: 20111103
  Transmission Date: 20120403
  Serious: Yes (Hospitalization)
  Sender: FDA-Public Use
  Company Number: US-ASTRAZENECA-2011SE63036

PATIENT
  Age: 68 Year
  Sex: Female

DRUGS (3)
  1. PROAIR HFA [Concomitant]
  2. SYMBICORT [Suspect]
     Route: 055
  3. NEXIUM [Concomitant]

REACTIONS (6)
  - ASTHMA [None]
  - GAIT DISTURBANCE [None]
  - BRONCHITIS [None]
  - HYPOACUSIS [None]
  - DRUG DOSE OMISSION [None]
  - PNEUMONIA [None]
